FAERS Safety Report 21663838 (Version 3)
Quarter: 2024Q1

REPORT INFORMATION
  Report Type: Spontaneous
  Country: JP (occurrence: JP)
  Receive Date: 20221130
  Receipt Date: 20240130
  Transmission Date: 20240409
  Serious: Yes (Death, Other)
  Sender: FDA-Public Use
  Company Number: JP-BRISTOL-MYERS SQUIBB COMPANY-2022-141232

PATIENT
  Age: 58 Year
  Sex: Male

DRUGS (6)
  1. BREYANZI [Suspect]
     Active Substance: LISOCABTAGENE MARALEUCEL
     Indication: Diffuse large B-cell lymphoma recurrent
     Dosage: ONE TIME DOSE
     Route: 041
     Dates: start: 20221031, end: 20221031
  2. LENADEX [Suspect]
     Active Substance: DEXAMETHASONE ACETATE
     Indication: Immune effector cell-associated neurotoxicity syndrome
     Dosage: EVERY 6 HOURS
     Dates: start: 20221105
  3. LENADEX [Suspect]
     Active Substance: DEXAMETHASONE ACETATE
     Dosage: EVERY 12 HOURS
     Dates: start: 20221109
  4. LENADEX [Suspect]
     Active Substance: DEXAMETHASONE ACETATE
     Dosage: EVERY 6 HOURS
     Dates: start: 20221110
  5. LENADEX [Suspect]
     Active Substance: DEXAMETHASONE ACETATE
     Dosage: EVERY 6 HOURS
     Dates: start: 20221112
  6. LENADEX [Suspect]
     Active Substance: DEXAMETHASONE ACETATE
     Dosage: EVERY 12 HOURS
     Dates: start: 20221102

REACTIONS (8)
  - Immune effector cell-associated neurotoxicity syndrome [Not Recovered/Not Resolved]
  - Cytokine release syndrome [Recovering/Resolving]
  - Cytopenia [Unknown]
  - Cytomegalovirus infection [Recovered/Resolved]
  - Hepatic function abnormal [Unknown]
  - Alanine aminotransferase increased [Unknown]
  - Aspartate aminotransferase increased [Unknown]
  - Sepsis [Fatal]

NARRATIVE: CASE EVENT DATE: 20221031
